FAERS Safety Report 13288131 (Version 1)
Quarter: 2017Q1

REPORT INFORMATION
  Report Type: Spontaneous
  Country: US (occurrence: US)
  Receive Date: 20170302
  Receipt Date: 20170302
  Transmission Date: 20170428
  Serious: No
  Sender: FDA-Public Use
  Company Number: US-LUNDBECK-DKLU2025955

PATIENT
  Sex: Female

DRUGS (6)
  1. ONFI [Suspect]
     Active Substance: CLOBAZAM
     Indication: BRAIN MALFORMATION
     Route: 065
  2. SABRIL [Concomitant]
     Active Substance: VIGABATRIN
     Indication: BRAIN MALFORMATION
     Route: 065
  3. BANZEL [Concomitant]
     Active Substance: RUFINAMIDE
     Indication: PRODUCT USED FOR UNKNOWN INDICATION
     Route: 065
  4. CBD OIL [Concomitant]
     Active Substance: CANNABIDIOL
     Indication: PRODUCT USED FOR UNKNOWN INDICATION
     Route: 065
  5. SABRIL [Concomitant]
     Active Substance: VIGABATRIN
     Route: 065
  6. CLORAZEPATE [Concomitant]
     Active Substance: CLORAZEPATE DIPOTASSIUM
     Indication: PRODUCT USED FOR UNKNOWN INDICATION
     Route: 065

REACTIONS (1)
  - Irritability [Unknown]
